FAERS Safety Report 8176597-5 (Version None)
Quarter: 2012Q1

REPORT INFORMATION
  Report Type: 
  Country: None (occurrence: None)
  Receive Date: 20120301
  Receipt Date: 20120222
  Transmission Date: 20120608
  Serious: Yes (Other)
  Sender: FDA-Public Use
  Company Number: US-JNJFOC-20120212326

PATIENT
  Sex: Female

DRUGS (1)
  1. REMICADE [Suspect]
     Indication: CROHN'S DISEASE
     Dosage: 6 YEAR HISTORY OF INFLIXIMAB, LAST DOSE WAS 10 YEARS AGO
     Route: 042

REACTIONS (1)
  - NEUROLOGICAL SYMPTOM [None]
